FAERS Safety Report 14411390 (Version 1)
Quarter: 2018Q1

REPORT INFORMATION
  Report Type: Spontaneous
  Country: US (occurrence: US)
  Receive Date: 20180119
  Receipt Date: 20180119
  Transmission Date: 20180509
  Serious: No
  Sender: FDA-Public Use
  Company Number: US-GLAXOSMITHKLINE-US2018007786

PATIENT

DRUGS (1)
  1. FLOLAN [Suspect]
     Active Substance: EPOPROSTENOL SODIUM
     Indication: RAYNAUD^S PHENOMENON
     Dosage: UNK UNK, U

REACTIONS (2)
  - Off label use [Unknown]
  - Product use in unapproved indication [Unknown]
